FAERS Safety Report 9774928 (Version 1)
Quarter: 2013Q4

REPORT INFORMATION
  Report Type: Spontaneous
  Country: CA (occurrence: CA)
  Receive Date: 20131220
  Receipt Date: 20131220
  Transmission Date: 20140711
  Serious: Yes (Other)
  Sender: FDA-Public Use
  Company Number: CHPA2013CA018225

PATIENT
  Age: 64 Year
  Sex: Male

DRUGS (3)
  1. OTRIVIN UNKNOWN [Suspect]
     Indication: NASAL CONGESTION
     Dosage: 6 DF, QD
     Route: 045
  2. OTRIVIN UNKNOWN [Suspect]
     Indication: NASAL CONGESTION
     Dosage: 6 OR 7 DF, UNK
     Route: 045
     Dates: end: 20131204
  3. OTRIVIN SALINE NASAL MIST WITH MOISTURISERS [Suspect]
     Indication: OFF LABEL USE

REACTIONS (5)
  - Drug dependence [Recovered/Resolved]
  - Nasopharyngitis [Not Recovered/Not Resolved]
  - Therapeutic response decreased [Unknown]
  - Drug ineffective for unapproved indication [Unknown]
  - Incorrect dose administered [Unknown]
